FAERS Safety Report 4620809-9 (Version None)
Quarter: 2005Q1

REPORT INFORMATION
  Report Type: 
  Country: None (occurrence: None)
  Receive Date: 20050325
  Receipt Date: 20050312
  Transmission Date: 20050727
  Serious: Yes (Hospitalization, Other)
  Sender: FDA-Public Use
  Company Number: 2005010506

PATIENT
  Age: 47 Year
  Sex: Male
  Weight: 140.6151 kg

DRUGS (4)
  1. CELEBREX [Suspect]
     Indication: ARTHRITIS
     Dosage: 200 MG (200 MG, 1 IN 1 D), ORAL
     Route: 048
     Dates: start: 20040413
  2. CELEBREX [Suspect]
     Indication: OSTEOARTHRITIS
     Dosage: 200 MG (200 MG, 1 IN 1 D), ORAL
     Route: 048
     Dates: start: 20040413
  3. METOPROLOL TARTRATE [Concomitant]
  4. CETIRIZINE HCL [Concomitant]

REACTIONS (23)
  - ATRIAL FIBRILLATION [None]
  - ATRIAL HYPERTROPHY [None]
  - BLOOD UREA INCREASED [None]
  - BUNDLE BRANCH BLOCK LEFT [None]
  - CEREBRAL DISORDER [None]
  - CEREBROVASCULAR ACCIDENT [None]
  - DISORIENTATION [None]
  - ELECTROCARDIOGRAM QT PROLONGED [None]
  - ELECTROCARDIOGRAM ST SEGMENT DEPRESSION [None]
  - EMBOLISM [None]
  - HYPERTENSION [None]
  - MENIERE'S DISEASE [None]
  - MITRAL VALVE INCOMPETENCE [None]
  - MUCOSAL DRYNESS [None]
  - MYOCARDIAL INFARCTION [None]
  - NYSTAGMUS [None]
  - PROTEIN URINE PRESENT [None]
  - VASCULAR OCCLUSION [None]
  - VERTIGO [None]
  - VESTIBULAR DISORDER [None]
  - VESTIBULAR NEURONITIS [None]
  - VISION BLURRED [None]
  - WHITE BLOOD CELLS URINE POSITIVE [None]
